FAERS Safety Report 11196924 (Version 1)
Quarter: 2015Q2

REPORT INFORMATION
  Report Type: Spontaneous
  Country: GB (occurrence: GB)
  Receive Date: 20150617
  Receipt Date: 20150617
  Transmission Date: 20150821
  Serious: Yes (Other)
  Sender: FDA-Public Use
  Company Number: GB-TEVA-570454ACC

PATIENT
  Age: 33 Year
  Sex: Male
  Weight: 95.25 kg

DRUGS (4)
  1. CITALOPRAM [Concomitant]
     Active Substance: CITALOPRAM HYDROBROMIDE
  2. ARIPIPRAZOLE. [Suspect]
     Active Substance: ARIPIPRAZOLE
     Indication: MAJOR DEPRESSION
     Route: 048
     Dates: start: 20150521, end: 20150529
  3. PROPRANOLOL HYDROCHLORIDE. [Concomitant]
     Active Substance: PROPRANOLOL HYDROCHLORIDE
  4. QUETIAPINE [Concomitant]
     Active Substance: QUETIAPINE
     Indication: MAJOR DEPRESSION

REACTIONS (3)
  - Restlessness [Not Recovered/Not Resolved]
  - Disinhibition [Recovering/Resolving]
  - Micturition urgency [Unknown]

NARRATIVE: CASE EVENT DATE: 20150522
